FAERS Safety Report 11323393 (Version 2)
Quarter: 2015Q4

REPORT INFORMATION
  Report Type: Spontaneous
  Country: IT (occurrence: IT)
  Receive Date: 20150730
  Receipt Date: 20151113
  Transmission Date: 20160304
  Serious: Yes (Hospitalization, Other)
  Sender: FDA-Public Use
  Company Number: IT-PFIZER INC-2015240819

PATIENT
  Age: 79 Year
  Sex: Female

DRUGS (19)
  1. PLASIL /00041901/ [Suspect]
     Active Substance: METOCLOPRAMIDE
     Indication: VOMITING
     Dosage: 3 DF, DAILY
     Route: 048
     Dates: start: 20150428, end: 20150618
  2. RIFAXIMIN [Concomitant]
     Active Substance: RIFAXIMIN
     Indication: DIARRHOEA
     Dosage: 10 ML, 4X/DAY (AS NEEDED)
     Route: 048
     Dates: start: 20150428, end: 20150618
  3. FUROSEMIDE. [Concomitant]
     Active Substance: FUROSEMIDE
     Dosage: 25 MG, UNK
     Route: 048
     Dates: start: 20150618
  4. CARBOCISTEINE [Concomitant]
     Active Substance: CARBOCYSTEINE
     Dosage: 1 DF, UNK
     Route: 048
  5. URSODEOXYCHOLIC ACID [Concomitant]
     Active Substance: URSODIOL
     Dosage: 3000 MG, UNK
     Route: 048
     Dates: start: 20150615, end: 20150713
  6. RIVOTRIL [Concomitant]
     Active Substance: CLONAZEPAM
     Dosage: 3 OR 4 GTT, DAILY (AS NEEDED)
     Route: 048
     Dates: start: 20150428, end: 20150713
  7. LYRICA [Suspect]
     Active Substance: PREGABALIN
     Indication: PAIN
     Dosage: 100 MG, 1X/DAY
     Route: 048
     Dates: start: 20141028, end: 20150713
  8. DUROGESIC [Suspect]
     Active Substance: FENTANYL
     Dosage: 12 ?G, CYCLIC (EVERY 3DAYS)
     Route: 062
     Dates: start: 20141028, end: 20150706
  9. ORAMORPH [Suspect]
     Active Substance: MORPHINE SULFATE
     Indication: PAIN
     Dosage: 4 DF (1X4 EVERY 6 HOURS MAXIMUM), DAILY
     Route: 048
     Dates: start: 20150526, end: 20150713
  10. SPIRONOLACTONE. [Concomitant]
     Active Substance: SPIRONOLACTONE
     Dosage: 25 MG, UNK
     Route: 048
     Dates: start: 20150618
  11. COUMADIN [Concomitant]
     Active Substance: WARFARIN SODIUM
     Dosage: 5 MG, UNK
     Route: 048
  12. DUROGESIC [Suspect]
     Active Substance: FENTANYL
     Indication: PAIN
     Dosage: 50 ?G, CYCLIC (EVERY 3DAYS)
     Route: 062
     Dates: start: 20141028, end: 20150706
  13. METOPROLOL [Concomitant]
     Active Substance: METOPROLOL
     Dosage: 200 MG, UNK
     Route: 048
     Dates: start: 20150618
  14. HALOPERIDOL. [Concomitant]
     Active Substance: HALOPERIDOL
     Dosage: 8 GTT, 2X/DAY (AS NEEDED)
     Route: 048
     Dates: start: 20150428, end: 20150618
  15. PANTOPRAZOLE [Concomitant]
     Active Substance: PANTOPRAZOLE SODIUM
     Dosage: 40 MG, UNK
     Route: 048
  16. ATORVASTATIN [Concomitant]
     Active Substance: ATORVASTATIN
     Dosage: 40 MG, UNK
     Route: 048
  17. DILTIAZEM HYDROCHLORIDE. [Concomitant]
     Active Substance: DILTIAZEM HYDROCHLORIDE
     Dosage: 120 MG, UNK
     Route: 048
     Dates: start: 20150618
  18. DIOSMECTAL [Suspect]
     Active Substance: UNSPECIFIED INGREDIENT
     Indication: DIARRHOEA
     Dosage: 3 DF, DAILY
     Route: 048
     Dates: start: 20150428, end: 20150618
  19. OLMESARTAN MEDOXOMIL. [Concomitant]
     Active Substance: OLMESARTAN MEDOXOMIL
     Dosage: 20 MG, UNK
     Route: 048
     Dates: start: 20150618

REACTIONS (4)
  - Subileus [Recovered/Resolved]
  - Constipation [Recovered/Resolved]
  - Gastrointestinal hypomotility [Recovered/Resolved]
  - Acute kidney injury [Unknown]

NARRATIVE: CASE EVENT DATE: 20150618
